FAERS Safety Report 10651696 (Version 1)
Quarter: 2014Q4

REPORT INFORMATION
  Report Type: Spontaneous
  Country: US (occurrence: None)
  Receive Date: 20141212
  Receipt Date: 20141212
  Transmission Date: 20150529
  Serious: No
  Sender: FDA-Public Use
  Company Number: None

PATIENT
  Age: 63 Year
  Sex: Female
  Weight: 86.18 kg

DRUGS (1)
  1. SOLU-MEDROL [Suspect]
     Active Substance: METHYLPREDNISOLONE SODIUM SUCCINATE
     Indication: DYSPNOEA
     Route: 042
     Dates: start: 20141208, end: 20141208

REACTIONS (8)
  - Paraesthesia [None]
  - Hypotension [None]
  - Feeling hot [None]
  - Nausea [None]
  - Bradycardia [None]
  - Feeling abnormal [None]
  - Flushing [None]
  - Hyperhidrosis [None]

NARRATIVE: CASE EVENT DATE: 20141208
